FAERS Safety Report 23726635 (Version 1)
Quarter: 2024Q2

REPORT INFORMATION
  Report Type: Report from Study
  Country: NL (occurrence: NL)
  Receive Date: 20240410
  Receipt Date: 20240410
  Transmission Date: 20240715
  Serious: Yes (Hospitalization)
  Sender: FDA-Public Use
  Company Number: None

PATIENT
  Age: 55 Year
  Sex: Male

DRUGS (2)
  1. CAPECITABINE [Suspect]
     Active Substance: CAPECITABINE
     Indication: Colorectal cancer metastatic
     Dosage: MOST RECENT CYCLE- 06-JUN-2023
  2. BEVACIZUMAB [Suspect]
     Active Substance: BEVACIZUMAB
     Indication: Colorectal cancer metastatic
     Dosage: MOST RECENT CYCLE- 06-JUN-2023

REACTIONS (3)
  - Hepatic enzyme abnormal [Recovered/Resolved]
  - Abdominal pain upper [Recovered/Resolved]
  - Metastases to liver [Recovered/Resolved]

NARRATIVE: CASE EVENT DATE: 20230703
